FAERS Safety Report 8127806-X (Version None)
Quarter: 2012Q1

REPORT INFORMATION
  Report Type: 
  Country: None (occurrence: None)
  Receive Date: 20120210
  Receipt Date: 20120201
  Transmission Date: 20120608
  Serious: Yes (Hospitalization, Other)
  Sender: FDA-Public Use
  Company Number: US-SANOFI-AVENTIS-2012SA006803

PATIENT
  Sex: Female

DRUGS (4)
  1. NIASPAN [Concomitant]
     Dates: start: 20090101
  2. SYNTHROID [Concomitant]
     Indication: HYPOTHYROIDISM
     Dates: start: 19870101
  3. PLAVIX [Suspect]
  4. TRICOR [Concomitant]
     Dates: end: 20110101

REACTIONS (9)
  - NEPHROPATHY [None]
  - CORONARY ARTERY OCCLUSION [None]
  - FATIGUE [None]
  - DRY MOUTH [None]
  - DRUG INTERACTION [None]
  - BLADDER DISORDER [None]
  - HYPOTENSION [None]
  - FEELING ABNORMAL [None]
  - PRURITUS [None]
